FAERS Safety Report 5145485-0 (Version None)
Quarter: 2006Q4

REPORT INFORMATION
  Report Type: 
  Country: None (occurrence: None)
  Receive Date: 20061101
  Receipt Date: 20061016
  Transmission Date: 20070319
  Serious: Yes (Life-Threatening, Hospitalization, Disabling)
  Sender: FDA-Public Use
  Company Number: US200609006010

PATIENT
  Age: 63 Year
  Sex: Female
  Weight: 63.5 kg

DRUGS (10)
  1. CYMBALTA [Suspect]
     Indication: DEPRESSION
     Dosage: 60 MG
     Dates: start: 20060801
  2. CLONIDINE [Concomitant]
  3. CRESTOR [Concomitant]
  4. ASPIRIN [Concomitant]
  5. CLARITIN /USA/ (LORATADINE) [Concomitant]
  6. SYNTHROID [Concomitant]
  7. FLONASE [Concomitant]
  8. AMBIEN [Concomitant]
  9. XANAX /USA/ (ALPRAZOLAM) [Concomitant]
  10. B12 ANKERMANN (CYANOCOBALAMIN) [Concomitant]

REACTIONS (9)
  - AORTIC VALVE INCOMPETENCE [None]
  - BRAIN STEM INFARCTION [None]
  - CONSTIPATION [None]
  - HIGH DENSITY LIPOPROTEIN INCREASED [None]
  - HOT FLUSH [None]
  - INFLAMMATION [None]
  - MITRAL VALVE INCOMPETENCE [None]
  - PULMONARY VALVE INCOMPETENCE [None]
  - TRICUSPID VALVE INCOMPETENCE [None]
